FAERS Safety Report 8308696-9 (Version None)
Quarter: 2012Q2

REPORT INFORMATION
  Report Type: 
  Country: None (occurrence: None)
  Receive Date: 20120420
  Receipt Date: 20120409
  Transmission Date: 20120825
  Serious: Yes (Death, Hospitalization)
  Sender: FDA-Public Use
  Company Number: DSA_56144_2012

PATIENT
  Sex: Female

DRUGS (2)
  1. METRONIDAZOLE [Suspect]
     Indication: PRODUCT USED FOR UNKNOWN INDICATION
     Dosage: DF 100 TABLETS ONE TIME, NOT THE PRESCRIBED AMOUNT, ORAL
     Route: 048
  2. ALCOHOL (ALCOHOL) [Suspect]
     Indication: PRODUCT USED FOR UNKNOWN INDICATION
     Dosage: 250 ML, 1 X , ORAL
     Route: 048

REACTIONS (16)
  - EXTENSOR PLANTAR RESPONSE [None]
  - KERNIG'S SIGN [None]
  - PLATELET COUNT DECREASED [None]
  - RED BLOOD CELL COUNT DECREASED [None]
  - ASCITES [None]
  - LOSS OF CONSCIOUSNESS [None]
  - HEPATIC NECROSIS [None]
  - OVERDOSE [None]
  - ECCHYMOSIS [None]
  - CONVULSION [None]
  - SUICIDE ATTEMPT [None]
  - BREATH SOUNDS ABNORMAL [None]
  - DYSPHORIA [None]
  - COMA [None]
  - DELIRIUM [None]
  - HEPATIC FAILURE [None]
